FAERS Safety Report 8398935-0 (Version None)
Quarter: 2012Q1

REPORT INFORMATION
  Report Type: 
  Country: None (occurrence: None)
  Receive Date: 20120323
  Receipt Date: 20110105
  Transmission Date: 20120608
  Serious: Yes (Hospitalization)
  Sender: FDA-Public Use
  Company Number: 163-21880-11010437

PATIENT
  Age: 78 Year
  Sex: Male
  Weight: 102.0593 kg

DRUGS (7)
  1. METFFORMIN HYDROCHLORIDE [Concomitant]
  2. REVLIMID [Suspect]
     Indication: MULTIPLE MYELOMA
     Dosage: 10 MG, QOD, PO
     Route: 048
     Dates: start: 20100301, end: 20100701
  3. DEXAMETHASONE [Concomitant]
  4. PROTONIX [Concomitant]
  5. HUMULIN N [Concomitant]
  6. BACTRIM [Concomitant]
  7. HYDROCHLOROTHIAZIDE [Concomitant]

REACTIONS (4)
  - PLATELET COUNT DECREASED [None]
  - HYPOAESTHESIA [None]
  - RENAL FAILURE [None]
  - DEHYDRATION [None]
